FAERS Safety Report 14842161 (Version 1)
Quarter: 2018Q2

REPORT INFORMATION
  Report Type: Spontaneous
  Country: US (occurrence: US)
  Receive Date: 20180418
  Receipt Date: 20180418
  Transmission Date: 20180711
  Serious: No
  Sender: FDA-Public Use
  Company Number: None

PATIENT

DRUGS (1)
  1. PRADAXA [Suspect]
     Active Substance: DABIGATRAN ETEXILATE MESYLATE

REACTIONS (8)
  - Haemorrhage [None]
  - Dysarthria [None]
  - Balance disorder [None]
  - Headache [None]
  - Abdominal pain [None]
  - Visual impairment [None]
  - Confusional state [None]
  - Eye disorder [None]
